FAERS Safety Report 6327252-5 (Version None)
Quarter: 2009Q3

REPORT INFORMATION
  Report Type: 
  Country: None (occurrence: None)
  Receive Date: 20090825
  Receipt Date: 20090820
  Transmission Date: 20100115
  Serious: Yes (Hospitalization)
  Sender: FDA-Public Use
  Company Number: BE-AMGEN-US361373

PATIENT
  Age: 62 Year
  Sex: Female

DRUGS (2)
  1. ENBREL [Suspect]
     Indication: PSORIATIC ARTHROPATHY
     Route: 058
     Dates: start: 20050201
  2. DICLOFENAC [Concomitant]
     Dosage: NOT PROVIDED
     Route: 065

REACTIONS (5)
  - ANAEMIA [None]
  - HYPOTENSION [None]
  - LEUKOPENIA [None]
  - PNEUMONIA [None]
  - RENAL IMPAIRMENT [None]
